FAERS Safety Report 17834528 (Version 1)
Quarter: 2020Q2

REPORT INFORMATION
  Report Type: Spontaneous
  Country: US (occurrence: US)
  Receive Date: 20200528
  Receipt Date: 20200528
  Transmission Date: 20200714
  Serious: No
  Sender: FDA-Public Use
  Company Number: US-PFIZER INC-2020207496

PATIENT
  Sex: Female

DRUGS (2)
  1. PROTONIX [OMEPRAZOLE] [Concomitant]
     Active Substance: OMEPRAZOLE
     Dosage: FOR A YEAR
  2. IBRANCE [Suspect]
     Active Substance: PALBOCICLIB
     Dosage: FOR 5 YEARS

REACTIONS (1)
  - Fatigue [Recovered/Resolved]
